FAERS Safety Report 7065774-2 (Version None)
Quarter: 2010Q4

REPORT INFORMATION
  Report Type: 
  Country: None (occurrence: None)
  Receive Date: 20101027
  Receipt Date: 20101018
  Transmission Date: 20110411
  Serious: Yes (Hospitalization, Other)
  Sender: FDA-Public Use
  Company Number: US-ACTELION-A-US2010-38506

PATIENT
  Sex: Female

DRUGS (32)
  1. BOSENTAN TABLET 125 MG US [Suspect]
     Indication: PULMONARY ARTERIAL HYPERTENSION
     Dosage: 125 MG, BID
     Route: 048
     Dates: start: 20070101
  2. REVATIO [Concomitant]
  3. ASPIRIN [Concomitant]
  4. CHROMIUM PICOLINATE [Concomitant]
  5. COMBIVENT [Concomitant]
  6. COUMADIN [Concomitant]
  7. CRANBERRY [Concomitant]
  8. CYANOCOBALAMIN [Concomitant]
  9. FISH OIL [Concomitant]
  10. FLAXSEED OIL [Concomitant]
  11. FLORINEF [Concomitant]
  12. FOSAMAX [Concomitant]
  13. HYDROCODONE BITARTRATE AND ACETAMINOPHEN [Concomitant]
  14. KELP [Concomitant]
  15. LASIX [Concomitant]
  16. LEVOTHYROXINE [Concomitant]
  17. LISINOPRIL [Concomitant]
  18. LOPRESSOR [Concomitant]
  19. MAGNESIUM [Concomitant]
  20. METOLAZONE [Concomitant]
  21. MORPHINE [Concomitant]
  22. PEPCID [Concomitant]
  23. POLY-IRON [Concomitant]
  24. POTASSIUM CHLORIDE [Concomitant]
  25. QVAR 40 [Concomitant]
  26. TRAZODONE [Concomitant]
  27. ASCORBIC ACID [Concomitant]
  28. VITAMIN D [Concomitant]
  29. ZAROXOLYN [Concomitant]
  30. ZINC [Concomitant]
  31. ZOCOR [Concomitant]
  32. VITAMIN B-12 [Concomitant]

REACTIONS (3)
  - ANEURYSM REPAIR [None]
  - ARTERIAL THROMBOSIS LIMB [None]
  - OEDEMA PERIPHERAL [None]
